FAERS Safety Report 8184466-X (Version None)
Quarter: 2012Q1

REPORT INFORMATION
  Report Type: 
  Country: None (occurrence: None)
  Receive Date: 20120305
  Receipt Date: 20120228
  Transmission Date: 20120608
  Serious: No
  Sender: FDA-Public Use
  Company Number: BR-B.I. PHARMACEUTICALS,INC./RIDGEFIELD-2012-BR-00193BR

PATIENT
  Sex: Female

DRUGS (4)
  1. ALENIA [Concomitant]
     Indication: ASTHMA
  2. METFORMIN HCL [Concomitant]
  3. LEVOTHYROXINE SODIUM [Concomitant]
  4. TRAYENTA [Suspect]
     Indication: DIABETES MELLITUS
     Route: 048
     Dates: end: 20120226

REACTIONS (4)
  - HYPERSENSITIVITY [None]
  - HYPERGLYCAEMIA [None]
  - URTICARIA [None]
  - ASTHMA [None]
